FAERS Safety Report 4930042-9 (Version None)
Quarter: 2006Q1

REPORT INFORMATION
  Report Type: 
  Country: None (occurrence: None)
  Receive Date: 20060302
  Receipt Date: 20060222
  Transmission Date: 20060701
  Serious: Yes (Hospitalization, Other)
  Sender: FDA-Public Use
  Company Number: PHFR2006GB00942

PATIENT
  Sex: Female

DRUGS (1)
  1. SYNTOCINON [Suspect]
     Indication: LABOUR INDUCTION
     Dosage: UNK, UNK
     Route: 065
     Dates: start: 20010101

REACTIONS (3)
  - CAESAREAN SECTION [None]
  - LABOUR COMPLICATION [None]
  - UTERINE HYPERTONUS [None]
